FAERS Safety Report 4737643-1 (Version None)
Quarter: 2005Q3

REPORT INFORMATION
  Report Type: 
  Country: None (occurrence: None)
  Receive Date: 20050809
  Receipt Date: 20050606
  Transmission Date: 20060218
  Serious: No
  Sender: FDA-Public Use
  Company Number: US-GLAXOSMITHKLINE-A0561297A

PATIENT
  Age: 48 Year
  Sex: Female

DRUGS (2)
  1. COMMIT [Suspect]
     Dates: start: 20050605
  2. NICODERM CQ [Suspect]
     Dates: start: 20050605

REACTIONS (3)
  - DYSPNOEA [None]
  - NAUSEA [None]
  - THROAT IRRITATION [None]
